FAERS Safety Report 10032615 (Version 1)
Quarter: 2014Q1

REPORT INFORMATION
  Report Type: Spontaneous
  Country: US (occurrence: US)
  Receive Date: 20140324
  Receipt Date: 20140324
  Transmission Date: 20141002
  Serious: Yes (Hospitalization)
  Sender: FDA-Public Use
  Company Number: US-PFIZER INC-2014083440

PATIENT
  Sex: 0

DRUGS (2)
  1. CELEBREX [Suspect]
     Indication: NON-HODGKIN^S LYMPHOMA
     Dosage: UNK
  2. PRANDIN [Suspect]
     Indication: HYPERGLYCAEMIA
     Dosage: UNK

REACTIONS (2)
  - Off label use [Unknown]
  - Blood glucose decreased [Unknown]
